FAERS Safety Report 4998521-6 (Version None)
Quarter: 2006Q2

REPORT INFORMATION
  Report Type: 
  Country: None (occurrence: None)
  Receive Date: 20060508
  Receipt Date: 20060427
  Transmission Date: 20061013
  Serious: Yes (Hospitalization, Other)
  Sender: FDA-Public Use
  Company Number: HQWYE702107APR06

PATIENT
  Age: 74 Year
  Sex: Male

DRUGS (2)
  1. ROFERON-A [Suspect]
     Indication: RENAL CELL CARCINOMA STAGE UNSPECIFIED
     Dosage: 4.5 MU THREE TIMES A WEEK
     Dates: start: 20041228, end: 20060402
  2. OPACORDEN (AMIODARONE) [Concomitant]

REACTIONS (9)
  - ATRIAL FIBRILLATION [None]
  - BLOOD CALCIUM DECREASED [None]
  - HAEMOGLOBIN DECREASED [None]
  - HYPERTENSION [None]
  - MYOCARDIAL ISCHAEMIA [None]
  - PLATELET COUNT DECREASED [None]
  - RED BLOOD CELL COUNT DECREASED [None]
  - THERAPY NON-RESPONDER [None]
  - WHITE BLOOD CELL COUNT DECREASED [None]
